FAERS Safety Report 5129743-1 (Version None)
Quarter: 2006Q4

REPORT INFORMATION
  Report Type: 
  Country: None (occurrence: None)
  Receive Date: 20061018
  Receipt Date: 20061006
  Transmission Date: 20070319
  Serious: Yes (Other)
  Sender: FDA-Public Use
  Company Number: US-ROCHE-467224

PATIENT
  Age: 59 Year
  Sex: Male

DRUGS (1)
  1. INTERFERON ALFA [Suspect]
     Route: 065

REACTIONS (2)
  - MIXED CONNECTIVE TISSUE DISEASE [None]
  - THERAPY NON-RESPONDER [None]
